FAERS Safety Report 18009254 (Version 1)
Quarter: 2020Q3

REPORT INFORMATION
  Report Type: Spontaneous
  Country: US (occurrence: US)
  Receive Date: 20200710
  Receipt Date: 20200710
  Transmission Date: 20201103
  Serious: Yes (Hospitalization, Other)
  Sender: FDA-Public Use
  Company Number: US-PURDUE-USA-2020-0155368

PATIENT
  Sex: Male

DRUGS (5)
  1. OXYCONTIN [Suspect]
     Active Substance: OXYCODONE HYDROCHLORIDE
     Dosage: 80 MG, BID
     Route: 048
  2. HYDROCODONE BITARTRATE AND ACETAMINOPHEN [Suspect]
     Active Substance: ACETAMINOPHEN\HYDROCODONE BITARTRATE
     Indication: PAIN
     Dosage: UNK
     Route: 048
  3. CANNABIS [Suspect]
     Active Substance: CANNABIS SATIVA SUBSP. INDICA TOP
     Indication: PAIN
     Dosage: UNK
     Route: 048
  4. OXYCONTIN [Suspect]
     Active Substance: OXYCODONE HYDROCHLORIDE
     Indication: PAIN
     Dosage: 20 MG, UNK
     Route: 048
     Dates: start: 2002
  5. OXYCODONE/ ACETAMINOPHEN TABLETS [Suspect]
     Active Substance: ACETAMINOPHEN\OXYCODONE HYDROCHLORIDE
     Indication: PAIN
     Dosage: UNK
     Route: 048

REACTIONS (21)
  - Diabetic neuropathy [Unknown]
  - Laryngeal cancer [Unknown]
  - Posterior reversible encephalopathy syndrome [Unknown]
  - Mental impairment [Unknown]
  - Hospitalisation [Unknown]
  - Vocal cordectomy [Unknown]
  - Anxiety [Unknown]
  - Pain in extremity [Unknown]
  - Weight abnormal [Unknown]
  - Jaw disorder [Unknown]
  - Insomnia [Unknown]
  - Seizure [Not Recovered/Not Resolved]
  - Tooth loss [Unknown]
  - Impaired work ability [Unknown]
  - Drug dependence [Unknown]
  - Tracheostomy [Unknown]
  - Speech disorder [Unknown]
  - Syncope [Unknown]
  - Headache [Unknown]
  - Neck pain [Unknown]
  - Unevaluable event [Unknown]

NARRATIVE: CASE EVENT DATE: 2009
